FAERS Safety Report 6772599-1 (Version None)
Quarter: 2010Q2

REPORT INFORMATION
  Report Type: 
  Country: None (occurrence: None)
  Receive Date: 20100616
  Receipt Date: 20091012
  Transmission Date: 20101027
  Serious: No
  Sender: FDA-Public Use
  Company Number: US-ASTRAZENECA-2009SE19663

PATIENT
  Age: 761 Month
  Sex: Female
  Weight: 58.1 kg

DRUGS (5)
  1. PULMICORT RESPULES [Suspect]
     Indication: SINUS OPERATION
     Route: 055
     Dates: start: 20090901
  2. PULMICORT RESPULES [Suspect]
     Indication: SINUSITIS
     Route: 055
     Dates: start: 20090901
  3. ADVAIR DISKUS 100/50 [Concomitant]
  4. PREVACID [Concomitant]
  5. ZANTAC [Concomitant]

REACTIONS (1)
  - DRY MOUTH [None]
